FAERS Safety Report 8037136-2 (Version None)
Quarter: 2012Q1

REPORT INFORMATION
  Report Type: 
  Country: None (occurrence: None)
  Receive Date: 20120111
  Receipt Date: 20120106
  Transmission Date: 20120608
  Serious: Yes (Other)
  Sender: FDA-Public Use
  Company Number: US-BAYER-2012-000808

PATIENT
  Age: 19 Year
  Sex: Female

DRUGS (1)
  1. MIRENA [Suspect]
     Indication: MENORRHAGIA
     Dosage: 20 MCG/24HR, UNK
     Route: 015
     Dates: start: 20111231, end: 20120105

REACTIONS (4)
  - VAGINAL HAEMORRHAGE [None]
  - PROCEDURAL PAIN [None]
  - DEVICE EXPULSION [None]
  - POST PROCEDURAL HAEMORRHAGE [None]
